FAERS Safety Report 14988255 (Version 2)
Quarter: 2018Q3

REPORT INFORMATION
  Report Type: Spontaneous
  Country: GB (occurrence: GB)
  Receive Date: 20180608
  Receipt Date: 20180719
  Transmission Date: 20181010
  Serious: Yes (Other)
  Sender: FDA-Public Use
  Company Number: GB-IPSEN BIOPHARMACEUTICALS, INC.-2018-08377

PATIENT
  Age: 58 Year
  Sex: Male

DRUGS (1)
  1. SOMATULINE AUTOGEL 60MG [Suspect]
     Active Substance: LANREOTIDE ACETATE
     Indication: NEUROENDOCRINE TUMOUR
     Dosage: 60 MG
     Route: 058
     Dates: start: 20040916, end: 20050106

REACTIONS (6)
  - Hepatic embolisation [Unknown]
  - Diarrhoea [Recovered/Resolved]
  - Colectomy [Recovered/Resolved]
  - Hepatic embolisation [Unknown]
  - Diarrhoea [Recovered/Resolved]
  - Diarrhoea [Recovered/Resolved]

NARRATIVE: CASE EVENT DATE: 2004
